FAERS Safety Report 5893147-4 (Version None)
Quarter: 2008Q3

REPORT INFORMATION
  Report Type: 
  Country: None (occurrence: None)
  Receive Date: 20080923
  Receipt Date: 20070827
  Transmission Date: 20090109
  Serious: No
  Sender: FDA-Public Use
  Company Number: US-ASTRAZENECA-2007UW20393

PATIENT
  Sex: Female
  Weight: 72.6 kg

DRUGS (4)
  1. SEROQUEL [Suspect]
     Indication: SCHIZOPHRENIA
     Route: 048
  2. COGENTIN [Concomitant]
  3. ZOLOFT [Concomitant]
  4. ADDERALL 10 [Concomitant]

REACTIONS (3)
  - DRY MOUTH [None]
  - HALLUCINATION [None]
  - TONGUE BITING [None]
